FAERS Safety Report 12857465 (Version 2)
Quarter: 2016Q4

REPORT INFORMATION
  Report Type: Spontaneous
  Country: CO (occurrence: CO)
  Receive Date: 20161018
  Receipt Date: 20161128
  Transmission Date: 20170207
  Serious: Yes (Other)
  Sender: FDA-Public Use
  Company Number: CO-PFIZER INC-2016482347

PATIENT
  Age: 6 Year
  Sex: Female

DRUGS (1)
  1. GENOTROPIN [Suspect]
     Active Substance: SOMATROPIN
     Indication: LAURENCE-MOON-BARDET-BIEDL SYNDROME
     Dosage: 1.4 MG, DAILY
     Route: 058
     Dates: start: 2014, end: 201611

REACTIONS (4)
  - Irritability [Not Recovered/Not Resolved]
  - Product use issue [Unknown]
  - Craniocerebral injury [Unknown]
  - Ataxia [Not Recovered/Not Resolved]

NARRATIVE: CASE EVENT DATE: 2014
